FAERS Safety Report 4711998-6 (Version None)
Quarter: 2005Q3

REPORT INFORMATION
  Report Type: 
  Country: None (occurrence: None)
  Receive Date: 20050706
  Receipt Date: 20041118
  Transmission Date: 20060218
  Serious: Yes (Hospitalization)
  Sender: FDA-Public Use
  Company Number: PRA098759

PATIENT
  Age: 73 Year
  Sex: Female

DRUGS (3)
  1. ARANESP [Suspect]
     Indication: ANAEMIA OF MALIGNANT DISEASE
     Dosage: 500 MCG, 1 IN 3 WEEKS, SC
     Route: 058
     Dates: start: 20040824
  2. GEMCITABINE HCL [Concomitant]
  3. CISPLATIN [Concomitant]

REACTIONS (2)
  - DEEP VEIN THROMBOSIS [None]
  - RENAL FAILURE [None]
